FAERS Safety Report 4385014-2 (Version None)
Quarter: 2004Q2

REPORT INFORMATION
  Report Type: 
  Country: None (occurrence: None)
  Receive Date: 20040625
  Receipt Date: 20040617
  Transmission Date: 20050107
  Serious: Yes (Death, Hospitalization)
  Sender: FDA-Public Use
  Company Number: US-GLAXOSMITHKLINE-A0515130A

PATIENT

DRUGS (1)
  1. SALMETEROL XINAFOATE [Suspect]
     Route: 055

REACTIONS (1)
  - DEATH [None]
